FAERS Safety Report 5083241-2 (Version None)
Quarter: 2006Q3

REPORT INFORMATION
  Report Type: 
  Country: None (occurrence: None)
  Receive Date: 20060816
  Receipt Date: 20060816
  Transmission Date: 20061208
  Serious: Yes (Other)
  Sender: FDA-Public Use
  Company Number: None

PATIENT
  Age: 44 Year
  Sex: Female
  Weight: 79.3795 kg

DRUGS (1)
  1. EFFEXOR [Suspect]
     Indication: PREMENSTRUAL SYNDROME
     Dosage: 150 MG 1 X DAILY
     Dates: start: 20000101, end: 20060701

REACTIONS (9)
  - CEREBRAL DISORDER [None]
  - CONFUSIONAL STATE [None]
  - DRUG PRESCRIBING ERROR [None]
  - DYSPEPSIA [None]
  - GINGIVAL BLEEDING [None]
  - IMPAIRED WORK ABILITY [None]
  - MALAISE [None]
  - MEMORY IMPAIRMENT [None]
  - PAIN [None]
